FAERS Safety Report 25300258 (Version 1)
Quarter: 2025Q2

REPORT INFORMATION
  Report Type: Spontaneous
  Country: CN (occurrence: CN)
  Receive Date: 20250512
  Receipt Date: 20250512
  Transmission Date: 20250716
  Serious: Yes (Hospitalization)
  Sender: BEIGENE
  Company Number: CN-BEIGENE-BGN-2025-007243

PATIENT
  Age: 77 Year
  Weight: 57 kg

DRUGS (16)
  1. TISLELIZUMAB [Suspect]
     Active Substance: TISLELIZUMAB
     Indication: Oesophageal carcinoma
     Dosage: 200 MILLIGRAM, Q3WK, D1
  2. TISLELIZUMAB [Suspect]
     Active Substance: TISLELIZUMAB
     Indication: Metastases to lymph nodes
     Dosage: 200 MILLIGRAM, Q3WK, D1
  3. TISLELIZUMAB [Suspect]
     Active Substance: TISLELIZUMAB
     Dosage: 200 MILLIGRAM, Q3WK, D1
     Route: 041
  4. TISLELIZUMAB [Suspect]
     Active Substance: TISLELIZUMAB
     Dosage: 200 MILLIGRAM, Q3WK, D1
     Route: 041
  5. TISLELIZUMAB [Suspect]
     Active Substance: TISLELIZUMAB
  6. TISLELIZUMAB [Suspect]
     Active Substance: TISLELIZUMAB
  7. TISLELIZUMAB [Suspect]
     Active Substance: TISLELIZUMAB
     Route: 041
  8. TISLELIZUMAB [Suspect]
     Active Substance: TISLELIZUMAB
     Route: 041
  9. PACLITAXEL [Suspect]
     Active Substance: PACLITAXEL
     Indication: Oesophageal carcinoma
     Dosage: 300 MILLIGRAM, Q3WK
  10. PACLITAXEL [Suspect]
     Active Substance: PACLITAXEL
     Indication: Metastases to lymph nodes
     Dosage: 300 MILLIGRAM, Q3WK
     Route: 041
  11. PACLITAXEL [Suspect]
     Active Substance: PACLITAXEL
  12. PACLITAXEL [Suspect]
     Active Substance: PACLITAXEL
     Route: 041
  13. NEDAPLATIN [Concomitant]
     Active Substance: NEDAPLATIN
     Indication: Oesophageal carcinoma
     Dosage: 100 MILLIGRAM, Q3WK
  14. NEDAPLATIN [Concomitant]
     Active Substance: NEDAPLATIN
     Indication: Metastases to lymph nodes
  15. CISPLATIN [Concomitant]
     Active Substance: CISPLATIN
     Indication: Oesophageal carcinoma
  16. CISPLATIN [Concomitant]
     Active Substance: CISPLATIN
     Indication: Metastases to lymph nodes

REACTIONS (5)
  - Pneumonia [Not Recovered/Not Resolved]
  - Urinary tract infection [Unknown]
  - Anaemia [Unknown]
  - Hypoproteinaemia [Unknown]
  - Electrolyte imbalance [Unknown]
